FAERS Safety Report 18315194 (Version 7)
Quarter: 2021Q1

REPORT INFORMATION
  Report Type: Report from Study
  Country: None (occurrence: CO)
  Receive Date: 20200926
  Receipt Date: 20210219
  Transmission Date: 20210419
  Serious: Yes (Other)
  Sender: FDA-Public Use
  Company Number: CO-ABBVIE-20K-036-3531634-00

PATIENT
  Age: 71 Year
  Sex: Male
  Weight: 84 kg

DRUGS (4)
  1. HUMIRA [Suspect]
     Active Substance: ADALIMUMAB
     Indication: PSORIASIS
     Route: 058
     Dates: end: 20200730
  2. VITAMIN A NOS [Concomitant]
     Active Substance: VITAMIN A
     Indication: PRODUCT USED FOR UNKNOWN INDICATION
  3. HUMIRA [Suspect]
     Active Substance: ADALIMUMAB
     Indication: PSORIASIS
     Route: 058
     Dates: start: 20140812
  4. IPRATROPIUM BROMIDE. [Concomitant]
     Active Substance: IPRATROPIUM BROMIDE
     Indication: PRODUCT USED FOR UNKNOWN INDICATION

REACTIONS (15)
  - Emphysema [Not Recovered/Not Resolved]
  - COVID-19 [Recovered/Resolved]
  - Aphonia [Recovering/Resolving]
  - Fatigue [Not Recovered/Not Resolved]
  - Malaise [Unknown]
  - Hyperhidrosis [Recovering/Resolving]
  - Lung disorder [Not Recovered/Not Resolved]
  - Unevaluable event [Not Recovered/Not Resolved]
  - Headache [Not Recovered/Not Resolved]
  - Liver disorder [Not Recovered/Not Resolved]
  - Asthenia [Recovering/Resolving]
  - Erythema [Recovering/Resolving]
  - Weight decreased [Recovering/Resolving]
  - Oxygen saturation decreased [Not Recovered/Not Resolved]
  - Computerised tomogram abnormal [Unknown]

NARRATIVE: CASE EVENT DATE: 2019
